FAERS Safety Report 21988597 (Version 1)
Quarter: 2023Q1

REPORT INFORMATION
  Report Type: Spontaneous
  Country: AU (occurrence: AU)
  Receive Date: 20230214
  Receipt Date: 20230214
  Transmission Date: 20230418
  Serious: Yes (Other)
  Sender: FDA-Public Use
  Company Number: None

PATIENT
  Age: 69 Year
  Sex: Male

DRUGS (25)
  1. LINEZOLID [Suspect]
     Active Substance: LINEZOLID
     Indication: Cerebral nocardiosis
     Dosage: UNK
     Route: 042
     Dates: start: 20200227, end: 202003
  2. LINEZOLID [Suspect]
     Active Substance: LINEZOLID
     Indication: Pulmonary nocardiosis
  3. AMIKACIN [Concomitant]
     Active Substance: AMIKACIN
     Indication: Cerebral nocardiosis
     Dosage: UNK
     Route: 042
     Dates: start: 2020, end: 20200422
  4. AMIKACIN [Concomitant]
     Active Substance: AMIKACIN
     Indication: Pulmonary nocardiosis
  5. MOXIFLOXACIN [Concomitant]
     Active Substance: MOXIFLOXACIN
     Indication: Cerebral nocardiosis
     Dosage: UNK
     Route: 042
     Dates: start: 20200313, end: 2020
  6. MOXIFLOXACIN [Concomitant]
     Active Substance: MOXIFLOXACIN
     Indication: Pulmonary nocardiosis
  7. SULFAMETHOXAZOLE\TRIMETHOPRIM [Concomitant]
     Active Substance: SULFAMETHOXAZOLE\TRIMETHOPRIM
     Indication: Cerebral nocardiosis
     Dosage: UNK
     Route: 048
     Dates: start: 202003
  8. SULFAMETHOXAZOLE\TRIMETHOPRIM [Concomitant]
     Active Substance: SULFAMETHOXAZOLE\TRIMETHOPRIM
     Indication: Pulmonary nocardiosis
     Dosage: UNK, TID
     Route: 042
  9. SULFAMETHOXAZOLE\TRIMETHOPRIM [Concomitant]
     Active Substance: SULFAMETHOXAZOLE\TRIMETHOPRIM
     Dosage: UNK; 160-800 MG
     Route: 048
  10. SULFAMETHOXAZOLE\TRIMETHOPRIM [Concomitant]
     Active Substance: SULFAMETHOXAZOLE\TRIMETHOPRIM
     Dosage: UNK; 400-2000 MG DAILY
     Route: 048
  11. VALACYCLOVIR HYDROCHLORIDE [Concomitant]
     Active Substance: VALACYCLOVIR HYDROCHLORIDE
     Indication: Herpes simplex
     Dosage: UNK
     Route: 065
     Dates: start: 20200313
  12. TOBRAMYCIN [Concomitant]
     Active Substance: TOBRAMYCIN
     Indication: Cerebral nocardiosis
     Dosage: UNK
     Route: 065
  13. TOBRAMYCIN [Concomitant]
     Active Substance: TOBRAMYCIN
     Indication: Pulmonary nocardiosis
  14. CLARITHROMYCIN [Concomitant]
     Active Substance: CLARITHROMYCIN
     Indication: Cerebral nocardiosis
     Dosage: UNK
     Route: 065
  15. CLARITHROMYCIN [Concomitant]
     Active Substance: CLARITHROMYCIN
     Indication: Pulmonary nocardiosis
  16. DOXYCYCLINE [Concomitant]
     Active Substance: DOXYCYCLINE
     Indication: Cerebral nocardiosis
     Dosage: UNK
     Route: 065
  17. DOXYCYCLINE [Concomitant]
     Active Substance: DOXYCYCLINE
     Indication: Pulmonary nocardiosis
  18. AMOXICILLIN\CLAVULANATE POTASSIUM [Concomitant]
     Active Substance: AMOXICILLIN\CLAVULANATE POTASSIUM
     Indication: Cerebral nocardiosis
     Dosage: UNK
     Route: 065
  19. AMOXICILLIN\CLAVULANATE POTASSIUM [Concomitant]
     Active Substance: AMOXICILLIN\CLAVULANATE POTASSIUM
     Indication: Pulmonary nocardiosis
  20. IMIPENEM [Concomitant]
     Active Substance: IMIPENEM
     Indication: Cerebral nocardiosis
     Dosage: UNK
     Route: 065
  21. IMIPENEM [Concomitant]
     Active Substance: IMIPENEM
     Indication: Pulmonary nocardiosis
  22. Ceftrioxone [Concomitant]
     Indication: Cerebral nocardiosis
     Dosage: UNK
     Route: 065
  23. Ceftrioxone [Concomitant]
     Indication: Pulmonary nocardiosis
  24. MINOCYCLINE [Concomitant]
     Active Substance: MINOCYCLINE HYDROCHLORIDE
     Indication: Cerebral nocardiosis
     Dosage: UNK
     Route: 065
  25. MINOCYCLINE [Concomitant]
     Active Substance: MINOCYCLINE HYDROCHLORIDE
     Indication: Pulmonary nocardiosis

REACTIONS (1)
  - Neutropenia [Unknown]

NARRATIVE: CASE EVENT DATE: 20200315
